FAERS Safety Report 9691537 (Version 2)
Quarter: 2015Q2

REPORT INFORMATION
  Report Type: Spontaneous
  Country: US (occurrence: US)
  Receive Date: 20131115
  Receipt Date: 20150515
  Transmission Date: 20150821
  Serious: Yes (Other)
  Sender: FDA-Public Use
  Company Number: PHHY2013US128668

PATIENT
  Age: 35 Year
  Sex: Male

DRUGS (1)
  1. METHOTREXATE [Suspect]
     Active Substance: METHOTREXATE
     Indication: MYELOID LEUKAEMIA
     Route: 037

REACTIONS (6)
  - Paraesthesia [Recovering/Resolving]
  - Quadriplegia [Recovering/Resolving]
  - Demyelinating polyneuropathy [Recovering/Resolving]
  - Dysphagia [Recovering/Resolving]
  - Paresis [Recovering/Resolving]
  - Areflexia [Recovering/Resolving]
